FAERS Safety Report 8328832-8 (Version None)
Quarter: 2012Q2

REPORT INFORMATION
  Report Type: 
  Country: None (occurrence: None)
  Receive Date: 20120502
  Receipt Date: 20120427
  Transmission Date: 20120825
  Serious: Yes (Life-Threatening, Hospitalization)
  Sender: FDA-Public Use
  Company Number: GB-ASTRAZENECA-2012SE27571

PATIENT
  Age: 42 Year
  Sex: Female

DRUGS (13)
  1. OMEPRAZOLE [Suspect]
     Route: 048
  2. FLUCLOXACILLIN [Concomitant]
  3. METHOTREXATE [Suspect]
     Route: 048
  4. MICONAZOLE [Concomitant]
  5. GABAPENTIN [Suspect]
     Route: 048
  6. NYSTATIN [Concomitant]
  7. SCHERIPROCT [Concomitant]
  8. HYDROXYCHLOROQUINE SULFATE [Suspect]
     Route: 048
  9. VENLAFAXINE [Suspect]
     Route: 048
  10. BENZYDAMINE [Concomitant]
  11. SULFASALAZINE [Suspect]
     Route: 048
  12. METHOTREXATE [Suspect]
     Route: 048
  13. METRONIDAZOLE [Concomitant]

REACTIONS (6)
  - HAEMATEMESIS [None]
  - ABDOMINAL PAIN [None]
  - DIARRHOEA [None]
  - FULL BLOOD COUNT ABNORMAL [None]
  - THROMBOCYTOPENIA [None]
  - CONTUSION [None]
